FAERS Safety Report 8502041-1 (Version None)
Quarter: 2012Q2

REPORT INFORMATION
  Report Type: 
  Country: None (occurrence: None)
  Receive Date: 20120405
  Receipt Date: 20100817
  Transmission Date: 20120825
  Serious: Yes (Other)
  Sender: FDA-Public Use
  Company Number: PHHY2010US47509

PATIENT
  Age: 82 Year
  Sex: Female
  Weight: 53.5 kg

DRUGS (8)
  1. RECLAST [Suspect]
     Indication: OSTEOPOROSIS
     Dosage: 5MG, INTRAVENOUS
     Route: 042
     Dates: start: 20100629
  2. FOSAMAX [Suspect]
  3. CITRACAL (CALCIUM CITRATE) [Concomitant]
  4. DILTIAZEM [Concomitant]
  5. XALATAN [Concomitant]
  6. CENTRUM SILVER (ASCORBIC ACID, CALCIUM, MINERALS NOS, RETINOL, TOCOPHE [Concomitant]
  7. VITAMIN D [Concomitant]
  8. ACTONEL [Suspect]

REACTIONS (5)
  - BLOOD PRESSURE INCREASED [None]
  - POLYDIPSIA [None]
  - TONGUE COATED [None]
  - FATIGUE [None]
  - MALAISE [None]
